FAERS Safety Report 4704146-X (Version None)
Quarter: 2005Q2

REPORT INFORMATION
  Report Type: 
  Country: None (occurrence: None)
  Receive Date: 20050628
  Receipt Date: 20050613
  Transmission Date: 20051028
  Serious: Yes (Hospitalization)
  Sender: FDA-Public Use
  Company Number: USA050597148

PATIENT
  Age: 78 Year
  Sex: Female

DRUGS (12)
  1. FORTEO [Suspect]
     Indication: OSTEOPOROSIS
     Dosage: 20 UG/1 IN THE MORNING
     Dates: start: 20050502
  2. LEVOXYL [Concomitant]
  3. CITRACAL + D [Concomitant]
  4. FISH OIL [Concomitant]
  5. FOLIC ACID [Concomitant]
  6. VITAMIN B6 [Concomitant]
  7. VITAMIN B-12 [Concomitant]
  8. ASPIRIN [Concomitant]
  9. GINKO BILOBA (GINKGO BILOBA) [Concomitant]
  10. DICLOFENAC SODIUM [Concomitant]
  11. ACETAMINOPHEN W/ PROPOXYPHENE HCL [Concomitant]
  12. MULTI-VITAMIN [Concomitant]

REACTIONS (4)
  - CHEST DISCOMFORT [None]
  - CONTUSION [None]
  - INJECTION SITE HAEMORRHAGE [None]
  - PHARMACEUTICAL PRODUCT COMPLAINT [None]
